FAERS Safety Report 21357350 (Version 1)
Quarter: 2022Q3

REPORT INFORMATION
  Report Type: Spontaneous
  Country: DE (occurrence: DE)
  Receive Date: 20220921
  Receipt Date: 20220921
  Transmission Date: 20221027
  Serious: Yes (Hospitalization)
  Sender: FDA-Public Use
  Company Number: DE-NOVARTISPH-NVSC2022DE209867

PATIENT
  Age: 67 Year
  Sex: Male

DRUGS (10)
  1. BISOPROLOL [Suspect]
     Active Substance: BISOPROLOL
     Indication: Product used for unknown indication
     Dosage: 5 MG, Q12H (1-0-1-0)
     Route: 048
  2. AKINETON [Concomitant]
     Active Substance: BIPERIDEN HYDROCHLORIDE
     Indication: Product used for unknown indication
     Dosage: 4 MG, QD (1-0-0-0)
     Route: 048
  3. RAMIPRIL [Concomitant]
     Active Substance: RAMIPRIL
     Indication: Product used for unknown indication
     Dosage: 5 MG, QD (1-0-0-0)
     Route: 048
  4. CETIRIZINE HYDROCHLORIDE [Concomitant]
     Active Substance: CETIRIZINE HYDROCHLORIDE
     Indication: Product used for unknown indication
     Dosage: 10 MG, QD (0-0-1-0)
     Route: 048
  5. LERCANIDIPINE [Concomitant]
     Active Substance: LERCANIDIPINE
     Indication: Product used for unknown indication
     Dosage: 10 MG, QD (1-0-0-0)
     Route: 048
  6. TORSEMIDE [Concomitant]
     Active Substance: TORSEMIDE
     Indication: Product used for unknown indication
     Dosage: 5 MG, QD (1-0-0-0)
     Route: 048
  7. MOXONIDINE [Concomitant]
     Active Substance: MOXONIDINE
     Indication: Product used for unknown indication
     Dosage: 0.2 MG, QD (1-0-1-0)
     Route: 048
  8. ABILIFY [Concomitant]
     Active Substance: ARIPIPRAZOLE
     Indication: Product used for unknown indication
     Dosage: 30 MG, QD (1-0-0-0)
     Route: 048
  9. MELPERONE [Concomitant]
     Active Substance: MELPERONE
     Indication: Product used for unknown indication
     Dosage: 50 MG, QD (0-0-1-0)
     Route: 048
  10. ALLOPURINOL [Concomitant]
     Active Substance: ALLOPURINOL
     Indication: Product used for unknown indication
     Dosage: 100 MG, QD (0-0-1-0)
     Route: 048

REACTIONS (3)
  - General physical health deterioration [Unknown]
  - Pyrexia [Unknown]
  - Soft tissue infection [Unknown]
